FAERS Safety Report 6701659-6 (Version None)
Quarter: 2010Q2

REPORT INFORMATION
  Report Type: 
  Country: None (occurrence: None)
  Receive Date: 20100427
  Receipt Date: 20100415
  Transmission Date: 20101027
  Serious: Yes (Hospitalization)
  Sender: FDA-Public Use
  Company Number: 2010AL002264

PATIENT
  Age: 70 Year
  Sex: Female
  Weight: 83.5 kg

DRUGS (12)
  1. HYDROCHLOROTHIAZIDE [Suspect]
     Indication: ESSENTIAL HYPERTENSION
     Dosage: 12.5 MG; QD; PO
     Route: 048
     Dates: start: 20090414, end: 20090427
  2. GABAPENTIN [Concomitant]
  3. TIMOLOL MALEATE [Concomitant]
  4. ALPHAGAN [Concomitant]
  5. XALATAN [Concomitant]
  6. TRUSOPT [Concomitant]
  7. ALBUTEROL [Concomitant]
  8. SPIRIVA [Concomitant]
  9. FOSAMAX [Concomitant]
  10. ACETAMINOPHEN [Concomitant]
  11. CALCIUM WITH VITAMIN D [Concomitant]
  12. TAK-491CLD [Concomitant]

REACTIONS (18)
  - AMNESIA [None]
  - ANKLE FRACTURE [None]
  - ATELECTASIS [None]
  - FALL [None]
  - FIBULA FRACTURE [None]
  - GLAUCOMA [None]
  - HAEMOGLOBIN DECREASED [None]
  - HYPERCALCAEMIA [None]
  - HYPERKALAEMIA [None]
  - HYPERPARATHYROIDISM [None]
  - HYPERTENSION [None]
  - LOSS OF CONSCIOUSNESS [None]
  - OSTEOPENIA [None]
  - PNEUMONIA [None]
  - PULMONARY EMBOLISM [None]
  - RENAL FAILURE ACUTE [None]
  - SINUS TACHYCARDIA [None]
  - SYNCOPE [None]
